FAERS Safety Report 4693310-4 (Version None)
Quarter: 2005Q2

REPORT INFORMATION
  Report Type: 
  Country: None (occurrence: None)
  Receive Date: 20050617
  Receipt Date: 20050304
  Transmission Date: 20051028
  Serious: Yes (Hospitalization, Disabling)
  Sender: FDA-Public Use
  Company Number: US-MERCK-0503USA00758

PATIENT
  Age: 66 Year
  Sex: Female

DRUGS (13)
  1. ZOCOR [Suspect]
     Indication: BLOOD CHOLESTEROL INCREASED
     Route: 048
  2. ZOCOR [Suspect]
     Indication: HYPERLIPIDAEMIA
     Route: 048
  3. [THERAPY UNSPECIFIED] [Concomitant]
     Indication: BLOOD PRESSURE ABNORMAL
     Route: 065
  4. LITHIUM SULFATE [Concomitant]
     Route: 065
  5. HYDRODIURIL [Concomitant]
     Route: 048
  6. KLONOPIN [Concomitant]
     Route: 065
  7. ZIAC [Concomitant]
     Route: 065
  8. ULTRAM [Concomitant]
     Route: 048
  9. PRINIVIL [Concomitant]
     Route: 048
  10. NYSTATIN [Concomitant]
     Route: 061
  11. PREVACID [Concomitant]
     Route: 048
  12. THIAMINE [Concomitant]
     Route: 048
  13. VITAMIN E [Concomitant]
     Route: 048

REACTIONS (5)
  - CEREBELLAR ATAXIA [None]
  - CEREBELLAR SYNDROME [None]
  - DYSPHAGIA [None]
  - HIGH DENSITY LIPOPROTEIN DECREASED [None]
  - MUSCULAR WEAKNESS [None]
